FAERS Safety Report 7387359-0 (Version None)
Quarter: 2011Q1

REPORT INFORMATION
  Report Type: 
  Country: None (occurrence: None)
  Receive Date: 20110331
  Receipt Date: 20110320
  Transmission Date: 20110831
  Serious: Yes (Other)
  Sender: FDA-Public Use
  Company Number: PHHY2011CO23791

PATIENT
  Sex: Male

DRUGS (4)
  1. SANDOSTATIN LAR [Suspect]
     Indication: NEUROENDOCRINE TUMOUR
     Dosage: 20 MG, UNK
     Route: 030
     Dates: start: 20101230, end: 20110320
  2. AMLODIPINE [Concomitant]
     Dosage: 5 MG, UNK
  3. ENALAPRIL MALEATE [Concomitant]
     Dosage: 20 MG, UNK
  4. HYDROCHLOROTHIAZIDE [Concomitant]
     Dosage: 25 MG, UNK

REACTIONS (3)
  - PERIPHERAL COLDNESS [None]
  - CYANOSIS [None]
  - VISION BLURRED [None]
